FAERS Safety Report 7182181-2 (Version None)
Quarter: 2010Q4

REPORT INFORMATION
  Report Type: 
  Country: None (occurrence: None)
  Receive Date: 20101221
  Receipt Date: 20100508
  Transmission Date: 20110411
  Serious: No
  Sender: FDA-Public Use
  Company Number: US-AMGEN-KDL411199

PATIENT

DRUGS (3)
  1. ENBREL [Suspect]
     Indication: PSORIASIS
     Dosage: 50 MG, QWK
     Route: 058
     Dates: start: 20050101
  2. FOLIC ACID [Concomitant]
     Dosage: UNK UNK, UNK
     Route: 048
  3. PRENATAL VITAMINS [Concomitant]
     Dosage: UNK UNK, UNK
     Route: 048

REACTIONS (2)
  - PSORIASIS [None]
  - THERAPEUTIC RESPONSE DECREASED [None]
